FAERS Safety Report 9645234 (Version 1)
Quarter: 2013Q4

REPORT INFORMATION
  Report Type: Spontaneous
  Country: US (occurrence: None)
  Receive Date: 20131023
  Receipt Date: 20131023
  Transmission Date: 20140711
  Serious: Yes (Hospitalization, Disabling)
  Sender: FDA-Public Use
  Company Number: None

PATIENT
  Age: 84 Year
  Sex: Female
  Weight: 78.93 kg

DRUGS (8)
  1. CRESTOR [Suspect]
     Indication: BLOOD CHOLESTEROL INCREASED
     Dates: start: 20130520, end: 20130815
  2. SYNTHROID [Concomitant]
  3. IRBESARTAN   (AVAPRO) [Concomitant]
  4. HYDR   ... TOLTERODINE  (DETROL) [Concomitant]
  5. MATURE MULTI ADULT VITAMINS [Concomitant]
  6. GLUCOSAMIE 1500 MG [Concomitant]
  7. CHORODROITON 1200 [Concomitant]
  8. ALLEVE [Concomitant]

REACTIONS (4)
  - Fall [None]
  - Upper limb fracture [None]
  - Pain in extremity [None]
  - Monoplegia [None]
